FAERS Safety Report 13600425 (Version 1)
Quarter: 2017Q2

REPORT INFORMATION
  Report Type: Spontaneous
  Country: US (occurrence: US)
  Receive Date: 20170531
  Receipt Date: 20170531
  Transmission Date: 20170830
  Serious: No
  Sender: FDA-Public Use
  Company Number: None

PATIENT
  Sex: Female

DRUGS (3)
  1. FORTEO [Suspect]
     Active Substance: TERIPARATIDE
     Indication: POST LAMINECTOMY SYNDROME
     Dosage: ?          OTHER FREQUENCY:EVERY DAY;?
     Route: 058
  2. FORTEO [Suspect]
     Active Substance: TERIPARATIDE
     Indication: SENILE OSTEOPOROSIS
     Dosage: ?          OTHER FREQUENCY:EVERY DAY;?
     Route: 058
  3. FORTEO [Suspect]
     Active Substance: TERIPARATIDE
     Indication: THORACIC VERTEBRAL FRACTURE
     Dosage: ?          OTHER FREQUENCY:EVERY DAY;?
     Route: 058

REACTIONS (2)
  - Overdose [None]
  - Renal disorder [None]
